FAERS Safety Report 4453310-6 (Version None)
Quarter: 2004Q3

REPORT INFORMATION
  Report Type: 
  Country: None (occurrence: None)
  Receive Date: 20040920
  Receipt Date: 20040909
  Transmission Date: 20050211
  Serious: Yes (Disabling, Other)
  Sender: FDA-Public Use
  Company Number: PT-MERCK-0409PRT00009

PATIENT
  Age: 55 Year
  Sex: Male

DRUGS (2)
  1. ATORVASTATIN CALCIUM [Suspect]
     Route: 048
  2. ZOCOR [Suspect]
     Route: 048

REACTIONS (1)
  - MUSCLE RUPTURE [None]
